FAERS Safety Report 4300203-0 (Version None)
Quarter: 2004Q1

REPORT INFORMATION
  Report Type: 
  Country: None (occurrence: None)
  Receive Date: 20040218
  Receipt Date: 20040205
  Transmission Date: 20041129
  Serious: Yes (Hospitalization)
  Sender: FDA-Public Use
  Company Number: 2004005980

PATIENT
  Age: 69 Year
  Sex: Female

DRUGS (7)
  1. ZOLOFT [Suspect]
     Indication: DYSTHYMIC DISORDER
     Dosage: 50 MG (DAILY), ORAL
     Route: 048
     Dates: start: 20031101
  2. SINEMET [Concomitant]
  3. ENALAPRIL MALEATE [Concomitant]
  4. ENALAPRIL MALEATE [Concomitant]
  5. ISOSORBIDE MONONITRATE [Concomitant]
  6. FLUNARIZINE DIHYDROCHLORIDE (FLUNARIZINE DIHYDROCHLORIDE) [Concomitant]
  7. BROMAZEPAM (BROMAZEPAM) [Concomitant]

REACTIONS (2)
  - HEPATIC FAILURE [None]
  - HEPATITIS ACUTE [None]
